FAERS Safety Report 4282381-5 (Version None)
Quarter: 2004Q1

REPORT INFORMATION
  Report Type: 
  Country: None (occurrence: None)
  Receive Date: 20040120
  Receipt Date: 20031017
  Transmission Date: 20041129
  Serious: Yes (Other)
  Sender: FDA-Public Use
  Company Number: US-JNJFOC-20031004548

PATIENT
  Age: 42 Year
  Sex: Female
  Weight: 59.4212 kg

DRUGS (1)
  1. COPPER T MODEL TCU 380A [Suspect]
     Indication: CONTRACEPTION
     Route: 015
     Dates: start: 20020125, end: 20021015

REACTIONS (4)
  - IUCD COMPLICATION [None]
  - METRORRHAGIA [None]
  - PAIN [None]
  - SMEAR CERVIX ABNORMAL [None]
